FAERS Safety Report 24344906 (Version 1)
Quarter: 2024Q3

REPORT INFORMATION
  Report Type: Spontaneous
  Country: US (occurrence: US)
  Receive Date: 20240920
  Receipt Date: 20240920
  Transmission Date: 20241016
  Serious: Yes (Other)
  Sender: DR REDDYS
  Company Number: US-DRL-USA-SPO/USA/24/0013684

PATIENT
  Age: 59 Year
  Sex: Male

DRUGS (3)
  1. APREMILAST [Suspect]
     Active Substance: APREMILAST
     Indication: Dermatomyositis
     Dosage: 30 MG TWICE DAILY
  2. TRIAMCINOLONE [Concomitant]
     Active Substance: TRIAMCINOLONE
     Indication: Dermatomyositis
  3. USTEKINUMAB [Concomitant]
     Active Substance: USTEKINUMAB
     Indication: Dermatomyositis
     Dosage: 90 MG ONCE EVERY 3 MONTHS

REACTIONS (1)
  - Drug ineffective for unapproved indication [Unknown]
